FAERS Safety Report 9276957 (Version 5)
Quarter: 2014Q2

REPORT INFORMATION
  Report Type: Spontaneous
  Country: FR (occurrence: None)
  Receive Date: 20130501
  Receipt Date: 20140616
  Transmission Date: 20141212
  Serious: Yes (Hospitalization, Other)
  Sender: FDA-Public Use
  Company Number: AG-2013-1488

PATIENT
  Age: 85 Year
  Sex: Male
  Weight: 61 kg

DRUGS (20)
  1. CHLORAMBUCIL [Suspect]
     Indication: B-CELL LYMPHOMA
  2. RITUXIMAB [Suspect]
     Indication: B-CELL LYMPHOMA
     Dates: start: 20121015
  3. RHUPH20 [Suspect]
     Indication: B-CELL LYMPHOMA
     Route: 058
     Dates: start: 20121105
  4. DESLORATADINE [Concomitant]
  5. HYDROXYZINE HYDROCHLORIDE [Concomitant]
  6. LOPERAMIDE [Concomitant]
  7. PARACETAMOL [Concomitant]
  8. DIOSMECTITE [Concomitant]
  9. METRONIDAZOLE [Concomitant]
  10. POLARAMINE [Concomitant]
  11. PREDNISOLONE [Concomitant]
  12. SULFAMETHOXAZOLE AND TRIMETHOPRIM [Concomitant]
  13. FLAGYL [Concomitant]
  14. LEVOFLOXACIN [Concomitant]
  15. METHYLPREDNISOLONE [Concomitant]
  16. CEFTRIAXONE [Concomitant]
  17. BACTRIM [Concomitant]
  18. ROCEPHINE [Concomitant]
  19. TAVANIC [Concomitant]
  20. SOLU-MEDROL [Concomitant]

REACTIONS (1)
  - Sepsis syndrome [None]
